FAERS Safety Report 14084891 (Version 1)
Quarter: 2017Q4

REPORT INFORMATION
  Report Type: Spontaneous
  Country: US (occurrence: US)
  Receive Date: 20171013
  Receipt Date: 20171013
  Transmission Date: 20180321
  Serious: No
  Sender: FDA-Public Use
  Company Number: US-WEST-WARD PHARMACEUTICALS CORP.-US-H14001-17-00380

PATIENT
  Sex: Female

DRUGS (2)
  1. LEVOFLOXACIN. [Suspect]
     Active Substance: LEVOFLOXACIN
     Indication: ESCHERICHIA BACTERAEMIA
  2. LEVOFLOXACIN. [Suspect]
     Active Substance: LEVOFLOXACIN
     Indication: CHOLECYSTITIS
     Route: 041
     Dates: end: 201702

REACTIONS (1)
  - Infusion site phlebitis [Recovering/Resolving]

NARRATIVE: CASE EVENT DATE: 20170131
